FAERS Safety Report 13560182 (Version 3)
Quarter: 2017Q3

REPORT INFORMATION
  Report Type: Spontaneous
  Country: US (occurrence: US)
  Receive Date: 20170518
  Receipt Date: 20170728
  Transmission Date: 20171127
  Serious: No
  Sender: FDA-Public Use
  Company Number: US-PFIZER INC-2017216080

PATIENT
  Age: 76 Year
  Sex: Female
  Weight: 81.63 kg

DRUGS (8)
  1. OMEPRAZOLE. [Concomitant]
     Active Substance: OMEPRAZOLE
     Dosage: UNK
     Dates: start: 2007
  2. OMEPRAZOLE. [Concomitant]
     Active Substance: OMEPRAZOLE
     Indication: GASTROOESOPHAGEAL REFLUX DISEASE
     Dosage: 20 MG (ONE CAPSULE), DAILY
     Route: 048
     Dates: start: 2007
  3. CELEBREX [Suspect]
     Active Substance: CELECOXIB
     Indication: LIMB DISCOMFORT
  4. MACROBID [Concomitant]
     Active Substance: NITROFURANTOIN\NITROFURANTOIN MONOHYDRATE
     Indication: ANTI-INFECTIVE THERAPY
     Dosage: 100 MG (ONE CAPSULE), 1X/DAY (BEDTIME)
     Route: 048
     Dates: start: 2007
  5. LIPITOR [Concomitant]
     Active Substance: ATORVASTATIN CALCIUM
     Indication: BLOOD CHOLESTEROL ABNORMAL
     Dosage: 10 MG, DAILY
     Route: 048
     Dates: start: 2000
  6. ANASTROZOLE. [Concomitant]
     Active Substance: ANASTROZOLE
     Indication: BREAST CANCER
     Dosage: 1 MG (1 TABLET), 1X/DAY AT BEDTIME
     Route: 048
     Dates: start: 201306
  7. CELEBREX [Suspect]
     Active Substance: CELECOXIB
     Indication: ARTHRALGIA
     Dosage: 200 TWICE A DAY, ONE CAPSULE IN THE MORNING AND ONE AT NIGHT
     Route: 048
     Dates: start: 2003
  8. CELEBREX [Suspect]
     Active Substance: CELECOXIB
     Indication: LIMB DISCOMFORT
     Dosage: 200 MG (ONE CAPSULE), DAILY
     Route: 048

REACTIONS (5)
  - Musculoskeletal stiffness [Recovered/Resolved]
  - Infection [Recovered/Resolved]
  - Pain [Recovered/Resolved]
  - Fatigue [Recovered/Resolved]
  - Muscle spasms [Recovered/Resolved]

NARRATIVE: CASE EVENT DATE: 201703
